FAERS Safety Report 8017446-5 (Version None)
Quarter: 2012Q1

REPORT INFORMATION
  Report Type: 
  Country: None (occurrence: None)
  Receive Date: 20120103
  Receipt Date: 20111230
  Transmission Date: 20120608
  Serious: Yes (Death, Hospitalization)
  Sender: FDA-Public Use
  Company Number: US-BRISTOL-MYERS SQUIBB COMPANY-16323297

PATIENT
  Age: 65 Year
  Sex: Male

DRUGS (2)
  1. ERBITUX [Suspect]
     Indication: NEOPLASM MALIGNANT
     Dosage: ALSO GIVEN ON 10NOV11
     Route: 042
     Dates: start: 20111103, end: 20111103
  2. TORISEL [Suspect]
     Indication: NEOPLASM MALIGNANT
     Dosage: ALSO GIVEN ON 10NOV11
     Route: 042
     Dates: start: 20111103, end: 20111103

REACTIONS (3)
  - PULMONARY EMBOLISM [None]
  - NEOPLASM MALIGNANT [None]
  - THROMBOSIS [None]
